FAERS Safety Report 18087076 (Version 3)
Quarter: 2020Q3

REPORT INFORMATION
  Report Type: Spontaneous
  Country: US (occurrence: US)
  Receive Date: 20200729
  Receipt Date: 20200916
  Transmission Date: 20201103
  Serious: Yes (Hospitalization, Other)
  Sender: FDA-Public Use
  Company Number: US-PFIZER INC-2020285454

PATIENT
  Age: 70 Year
  Sex: Male
  Weight: 87.08 kg

DRUGS (2)
  1. MAGNESIUM [Concomitant]
     Active Substance: MAGNESIUM
     Indication: HYPERTENSION
     Dosage: 400 MG, 2X/DAY
  2. MERREM [Suspect]
     Active Substance: MEROPENEM
     Indication: ABSCESS
     Dosage: UNK (TREATMENT COMPLETED)
     Route: 042
     Dates: start: 201812, end: 20190123

REACTIONS (5)
  - Palpitations [Unknown]
  - Cardiac disorder [Not Recovered/Not Resolved]
  - Tachycardia [Not Recovered/Not Resolved]
  - Memory impairment [Not Recovered/Not Resolved]
  - Mental disorder [Not Recovered/Not Resolved]

NARRATIVE: CASE EVENT DATE: 201812
